FAERS Safety Report 20420237 (Version 1)
Quarter: 2022Q1

REPORT INFORMATION
  Report Type: Spontaneous
  Country: RU (occurrence: RU)
  Receive Date: 20220203
  Receipt Date: 20220203
  Transmission Date: 20220424
  Serious: Yes (Congenital Anomaly, Other)
  Sender: FDA-Public Use
  Company Number: None

PATIENT
  Sex: Female
  Weight: 50 kg

DRUGS (1)
  1. GADOBUTROL [Suspect]
     Active Substance: GADOBUTROL
     Dosage: 5 ML, ONCE
     Route: 042
     Dates: start: 20211015, end: 20211015

REACTIONS (6)
  - Foetal growth abnormality [Unknown]
  - Congenital gastric anomaly [None]
  - Congenital bladder anomaly [None]
  - Renal hypoplasia [None]
  - Pericardial effusion [None]
  - Oligohydramnios [None]
